FAERS Safety Report 7713676-8 (Version None)
Quarter: 2011Q3

REPORT INFORMATION
  Report Type: 
  Country: None (occurrence: None)
  Receive Date: 20110826
  Receipt Date: 20110823
  Transmission Date: 20111222
  Serious: Yes (Death)
  Sender: FDA-Public Use
  Company Number: LB-ROCHE-798675

PATIENT
  Sex: Male
  Weight: 59 kg

DRUGS (5)
  1. BEVACIZUMAB [Suspect]
     Route: 042
     Dates: start: 20100928, end: 20110623
  2. CAMPTOSAR [Concomitant]
     Indication: COLORECTAL CANCER
     Route: 042
     Dates: start: 20110426, end: 20110623
  3. CAPECITABINE [Concomitant]
     Indication: COLORECTAL CANCER
     Route: 048
     Dates: start: 20100913
  4. OXALIPLATIN [Concomitant]
     Indication: COLORECTAL CANCER
     Route: 042
     Dates: start: 20100913
  5. BEVACIZUMAB [Suspect]
     Indication: COLORECTAL CANCER
     Route: 042
     Dates: start: 20100913

REACTIONS (1)
  - DEATH [None]
